FAERS Safety Report 5872961-5 (Version None)
Quarter: 2008Q3

REPORT INFORMATION
  Report Type: 
  Country: None (occurrence: None)
  Receive Date: 20080905
  Receipt Date: 20080827
  Transmission Date: 20090109
  Serious: Yes (Other)
  Sender: FDA-Public Use
  Company Number: DE-PFIZER INC-2008071670

PATIENT
  Age: 32 Year
  Sex: Female
  Weight: 80 kg

DRUGS (3)
  1. GENOTROPIN [Suspect]
     Indication: HYPOPITUITARISM
     Dosage: DAILY DOSE:.6MG
     Route: 058
     Dates: start: 20030528, end: 20080806
  2. DESMOPRESSIN ACETATE [Concomitant]
     Route: 045
  3. DIANE [Concomitant]
     Dosage: TEXT:1 TABLET DAILY
     Route: 048
     Dates: start: 19970701

REACTIONS (2)
  - HAEMANGIOMA [None]
  - NEOPLASM RECURRENCE [None]
